FAERS Safety Report 23235640 (Version 2)
Quarter: 2023Q4

REPORT INFORMATION
  Report Type: Spontaneous
  Country: US (occurrence: US)
  Receive Date: 20231128
  Receipt Date: 20231227
  Transmission Date: 20240110
  Serious: No
  Sender: FDA-Public Use
  Company Number: US-PFIZER INC-202300381502

PATIENT
  Age: 78 Year
  Sex: Female
  Weight: 88.45 kg

DRUGS (6)
  1. IBRANCE [Suspect]
     Active Substance: PALBOCICLIB
     Indication: Metastatic neoplasm
     Dosage: 75 MG, 1X/DAY
     Route: 048
     Dates: start: 2020
  2. IBRANCE [Suspect]
     Active Substance: PALBOCICLIB
     Indication: Breast cancer
  3. ATORVASTATIN [Concomitant]
     Active Substance: ATORVASTATIN
  4. LIPITOR [Concomitant]
     Active Substance: ATORVASTATIN CALCIUM
     Dosage: 10 MG, 1X/DAY
  5. ANASTROZOLE [Concomitant]
     Active Substance: ANASTROZOLE
  6. METOPROLOL [Concomitant]
     Active Substance: METOPROLOL
     Dosage: 75 MG, 2X/DAY

REACTIONS (2)
  - Tooth abscess [Unknown]
  - Product storage error [Unknown]
